FAERS Safety Report 4850757-0 (Version None)
Quarter: 2005Q4

REPORT INFORMATION
  Report Type: 
  Country: None (occurrence: None)
  Receive Date: 20051212
  Receipt Date: 20051026
  Transmission Date: 20060501
  Serious: Yes (Hospitalization)
  Sender: FDA-Public Use
  Company Number: US-BRISTOL-MYERS SQUIBB COMPANY-13157938

PATIENT
  Age: 71 Year
  Sex: Male

DRUGS (12)
  1. CISPLATIN [Suspect]
     Indication: NON-SMALL CELL LUNG CANCER
     Route: 041
     Dates: start: 20050928, end: 20050928
  2. TS-1 [Suspect]
     Indication: NON-SMALL CELL LUNG CANCER
     Route: 048
     Dates: start: 20050928, end: 20051010
  3. COMPAZINE [Concomitant]
     Indication: NAUSEA
     Route: 048
     Dates: start: 20050928
  4. MULTI-VITAMIN [Concomitant]
     Indication: VITAMIN SUPPLEMENTATION
     Route: 048
     Dates: start: 20000101
  5. ASPIRIN [Concomitant]
     Indication: PROPHYLAXIS
     Route: 048
     Dates: start: 20040101
  6. VITAMIN C + ROSE HIPS [Concomitant]
     Indication: VITAMIN SUPPLEMENTATION
     Route: 048
     Dates: start: 20040101
  7. CO-Q-10 [Concomitant]
     Indication: MEDICAL DIET
     Route: 048
     Dates: start: 20040101
  8. RED YEAST RICE [Concomitant]
     Indication: MEDICAL DIET
     Route: 048
     Dates: start: 20040101
  9. ALLIUM SATIVUM [Concomitant]
     Indication: MEDICAL DIET
     Route: 048
     Dates: start: 20040101
  10. MEGACE [Concomitant]
     Indication: ANOREXIA
     Route: 048
     Dates: start: 20050920
  11. MAG-OX [Concomitant]
     Indication: HYPOMAGNESAEMIA
     Route: 048
     Dates: start: 20050831
  12. PRILOSEC [Concomitant]
     Indication: GASTROOESOPHAGEAL REFLUX DISEASE
     Route: 048
     Dates: start: 20050901

REACTIONS (5)
  - ANAEMIA [None]
  - DEHYDRATION [None]
  - NAUSEA [None]
  - PYREXIA [None]
  - VOMITING [None]
